FAERS Safety Report 10896911 (Version 1)
Quarter: 2015Q1

REPORT INFORMATION
  Report Type: Spontaneous
  Country: IN (occurrence: None)
  Receive Date: 20150302
  Receipt Date: 20150302
  Transmission Date: 20150721
  Serious: No
  Sender: FDA-Public Use
  Company Number: None

PATIENT
  Age: 62 Year
  Sex: Male

DRUGS (10)
  1. CLOPILET 75MG [Suspect]
     Active Substance: CLOPIDOGREL BISULFATE
     Indication: CORONARY ARTERY DISEASE
     Route: 048
  2. INJ. PERINORM [Concomitant]
  3. CLOPILET 75MG [Suspect]
     Active Substance: CLOPIDOGREL BISULFATE
     Indication: MYOCARDIAL INFARCTION
     Route: 048
  4. T. PRESOLAR [Concomitant]
  5. ASPIRIN 150MG [Suspect]
     Active Substance: ASPIRIN
     Indication: CORONARY ARTERY DISEASE
     Dosage: 150
     Route: 048
  6. INJ. TAXIM [Concomitant]
  7. ASPIRIN 150MG [Suspect]
     Active Substance: ASPIRIN
     Indication: MYOCARDIAL INFARCTION
     Dosage: 150
     Route: 048
  8. ASPIRIN 150MG [Suspect]
     Active Substance: ASPIRIN
     Indication: ARTERIOGRAM CORONARY
     Dosage: 150
     Route: 048
  9. CLOPILET 75MG [Suspect]
     Active Substance: CLOPIDOGREL BISULFATE
     Indication: ARTERIOGRAM CORONARY
     Route: 048
  10. INJ. NEKSIUM [Concomitant]

REACTIONS (2)
  - Upper gastrointestinal haemorrhage [None]
  - Haematemesis [None]
